FAERS Safety Report 7548660-0 (Version None)
Quarter: 2011Q2

REPORT INFORMATION
  Report Type: 
  Country: None (occurrence: None)
  Receive Date: 20110615
  Receipt Date: 20110531
  Transmission Date: 20111010
  Serious: Yes (Other)
  Sender: FDA-Public Use
  Company Number: US-JNJFOC-20110600672

PATIENT
  Age: 60 Year
  Sex: Male

DRUGS (2)
  1. REMICADE [Suspect]
     Indication: CROHN'S DISEASE
     Route: 042
  2. REMICADE [Suspect]
     Dosage: ON THERAPY FOR 6 MONTHS
     Route: 042

REACTIONS (6)
  - LIMB INJURY [None]
  - VOMITING [None]
  - MYCOBACTERIUM MARINUM INFECTION [None]
  - NAUSEA [None]
  - DIARRHOEA [None]
  - SCAR [None]
